FAERS Safety Report 18430730 (Version 2)
Quarter: 2021Q1

REPORT INFORMATION
  Report Type: Report from Study
  Country: JP (occurrence: JP)
  Receive Date: 20201027
  Receipt Date: 20210126
  Transmission Date: 20210419
  Serious: Yes (Other)
  Sender: FDA-Public Use
  Company Number: JP-MYLANLABS-2020M1089147

PATIENT
  Age: 70 Year
  Sex: Female

DRUGS (4)
  1. CARBOPLATIN INJ. 50MG ^NK^ [Suspect]
     Active Substance: CARBOPLATIN
     Dosage: WITH DOCETAXEL
     Route: 065
  2. PACLITAXEL. [Suspect]
     Active Substance: PACLITAXEL
     Indication: ENDOMETRIAL CANCER
     Route: 065
  3. CARBOPLATIN INJ. 50MG ^NK^ [Suspect]
     Active Substance: CARBOPLATIN
     Indication: ENDOMETRIAL CANCER
     Dosage: WITH PACLITAXEL
     Route: 065
  4. DOCETAXEL. [Suspect]
     Active Substance: DOCETAXEL
     Indication: ENDOMETRIAL CANCER
     Route: 065

REACTIONS (3)
  - Neuropathy peripheral [Recovering/Resolving]
  - Ileus [Unknown]
  - Constipation [Unknown]
